FAERS Safety Report 14171155 (Version 1)
Quarter: 2017Q4

REPORT INFORMATION
  Report Type: Spontaneous
  Country: IL (occurrence: IL)
  Receive Date: 20171108
  Receipt Date: 20171108
  Transmission Date: 20180321
  Serious: Yes (Hospitalization, Other)
  Sender: FDA-Public Use
  Company Number: IL-JNJFOC-20171105545

PATIENT
  Age: 85 Year
  Sex: Male

DRUGS (3)
  1. HYDREA [Concomitant]
     Active Substance: HYDROXYUREA
     Route: 065
  2. ENALADEX [Concomitant]
     Active Substance: ENALAPRIL MALEATE
     Route: 065
  3. XARELTO [Suspect]
     Active Substance: RIVAROXABAN
     Indication: PRODUCT USED FOR UNKNOWN INDICATION
     Route: 048

REACTIONS (3)
  - Haemorrhage intracranial [Not Recovered/Not Resolved]
  - Cerebrovascular disorder [Unknown]
  - Epistaxis [Unknown]

NARRATIVE: CASE EVENT DATE: 2014
